FAERS Safety Report 10510772 (Version 1)
Quarter: 2014Q4

REPORT INFORMATION
  Report Type: Spontaneous
  Country: US (occurrence: US)
  Receive Date: 20141010
  Receipt Date: 20141010
  Transmission Date: 20150528
  Serious: Yes (Other)
  Sender: FDA-Public Use
  Company Number: US-PFIZER INC-2014278108

PATIENT
  Age: 37 Year
  Sex: Male
  Weight: 100 kg

DRUGS (6)
  1. PROZAC [Concomitant]
     Active Substance: FLUOXETINE HYDROCHLORIDE
     Dosage: 40 MG, DAILY
     Route: 048
  2. CARISOPRODOL. [Concomitant]
     Active Substance: CARISOPRODOL
     Dosage: 350 MG, 2X/DAY
     Route: 048
  3. METHADONE [Concomitant]
     Active Substance: METHADONE HYDROCHLORIDE
     Indication: BACK DISORDER
     Dosage: 10 MG, (8 TIMES PER DAY)
     Route: 048
  4. LYRICA [Suspect]
     Active Substance: PREGABALIN
     Indication: BACK PAIN
     Dosage: 100 MG, 3X/DAY
     Route: 048
     Dates: start: 201308, end: 201408
  5. HYDROCODONE [Concomitant]
     Active Substance: HYDROCODONE
     Dosage: 10MG/325MG, AS NEEDED
     Route: 048
  6. METHADONE [Concomitant]
     Active Substance: METHADONE HYDROCHLORIDE
     Indication: MUSCULOSKELETAL DISORDER

REACTIONS (6)
  - Abnormal behaviour [Unknown]
  - Depression [Recovered/Resolved]
  - Feeling abnormal [Recovered/Resolved]
  - Nervousness [Unknown]
  - Mental impairment [Recovered/Resolved]
  - Mood altered [Unknown]

NARRATIVE: CASE EVENT DATE: 201408
